FAERS Safety Report 12094980 (Version 1)
Quarter: 2016Q1

REPORT INFORMATION
  Report Type: Spontaneous
  Country: RU (occurrence: RU)
  Receive Date: 20160219
  Receipt Date: 20160219
  Transmission Date: 20160526
  Serious: Yes (Hospitalization, Other)
  Sender: FDA-Public Use
  Company Number: RU-PERNIX THERAPEUTICS-2015PT000275

PATIENT

DRUGS (4)
  1. EURESPAL [Concomitant]
     Active Substance: FENSPIRIDE HYDROCHLORIDE
  2. IMUDON [Concomitant]
  3. CEDAX [Suspect]
     Active Substance: CEFTIBUTEN DIHYDRATE
     Indication: RESPIRATORY TRACT INFECTION VIRAL
     Dosage: UNK
     Route: 048
     Dates: start: 201402, end: 2014
  4. CEDAX [Suspect]
     Active Substance: CEFTIBUTEN DIHYDRATE
     Indication: BACTERIAL INFECTION

REACTIONS (1)
  - Urticaria [Recovered/Resolved]

NARRATIVE: CASE EVENT DATE: 2014
